FAERS Safety Report 5688853-0 (Version None)
Quarter: 2008Q1

REPORT INFORMATION
  Report Type: 
  Country: None (occurrence: None)
  Receive Date: 20080331
  Receipt Date: 20050303
  Transmission Date: 20080703
  Serious: Yes (Death, Other)
  Sender: FDA-Public Use
  Company Number: JP-ROCHE-397341

PATIENT
  Age: 88 Year
  Sex: Male

DRUGS (5)
  1. TAMIFLU [Suspect]
     Indication: INFLUENZA
     Route: 048
  2. MEXITIL [Concomitant]
     Route: 048
  3. LASIX [Concomitant]
  4. GLUCONSAN K [Concomitant]
     Route: 048
  5. ASPIRIN [Concomitant]
     Route: 048

REACTIONS (3)
  - CARDIAC FIBRILLATION [None]
  - CARDIOMEGALY [None]
  - DEATH [None]
